FAERS Safety Report 6294265-1 (Version None)
Quarter: 2009Q3

REPORT INFORMATION
  Report Type: 
  Country: None (occurrence: None)
  Receive Date: 20090803
  Receipt Date: 20090417
  Transmission Date: 20100115
  Serious: No
  Sender: FDA-Public Use
  Company Number: A0779790A

PATIENT
  Age: 21 Year
  Sex: Female

DRUGS (1)
  1. NICORETTE [Suspect]
     Dates: start: 20090415

REACTIONS (3)
  - FEELING ABNORMAL [None]
  - FORMICATION [None]
  - MENTAL DISORDER [None]
